FAERS Safety Report 17071760 (Version 1)
Quarter: 2019Q4

REPORT INFORMATION
  Report Type: Spontaneous
  Country: CZ (occurrence: CZ)
  Receive Date: 20191125
  Receipt Date: 20191125
  Transmission Date: 20200122
  Serious: Yes (Hospitalization)
  Sender: FDA-Public Use
  Company Number: CZ-ASTRAZENECA-2019SF65689

PATIENT
  Age: 75 Year
  Sex: Male

DRUGS (8)
  1. SPIOLTO [Concomitant]
     Active Substance: OLODATEROL HYDROCHLORIDE\TIOTROPIUM BROMIDE MONOHYDRATE
     Dosage: LONG-TERM 2 - 0 - 0
     Route: 055
  2. MILURIT [Concomitant]
     Active Substance: ALLOPURINOL
     Dosage: LONG-TERM 0 - 1 - 0
     Route: 048
  3. EUPHYLLIN CR [Concomitant]
     Dosage: LONGTERM 1 - 0 - 1
     Route: 048
  4. BERODUAL [Concomitant]
     Active Substance: FENOTEROL HYDROBROMIDE\IPRATROPIUM BROMIDE
     Indication: DYSPNOEA
     Dosage: 2 BREATH-INS IN CASE OF DYSPNOEA
     Route: 055
  5. FLUTIFORM [Concomitant]
     Active Substance: FLUTICASONE PROPIONATE\FORMOTEROL FUMARATE
     Dosage: LONG-TERM 1 - 0 - 0
     Route: 055
  6. DAXAS [Suspect]
     Active Substance: ROFLUMILAST
     Indication: CHRONIC OBSTRUCTIVE PULMONARY DISEASE
     Dosage: 500UG/INHAL DAILY
     Route: 048
     Dates: start: 20180904, end: 201811
  7. ERDOMED [Concomitant]
     Active Substance: ERDOSTEINE
     Dosage: LONG-TERM 1 - 0 - 1
     Route: 048
  8. SANVAL [Concomitant]
     Active Substance: ZOLPIDEM TARTRATE
     Dosage: 0 - 0 - 0 -1 LONG-TERM USE BEFORE DAXAS
     Route: 048

REACTIONS (4)
  - Abnormal loss of weight [Recovered/Resolved]
  - Decreased appetite [Recovered/Resolved]
  - Insomnia [Recovered/Resolved]
  - Dysphagia [Recovered/Resolved]

NARRATIVE: CASE EVENT DATE: 201809
